FAERS Safety Report 6120950-8 (Version None)
Quarter: 2009Q1

REPORT INFORMATION
  Report Type: 
  Country: None (occurrence: None)
  Receive Date: 20090312
  Receipt Date: 20090312
  Transmission Date: 20090719
  Serious: Yes (Hospitalization)
  Sender: FDA-Public Use
  Company Number: None

PATIENT
  Age: 54 Year
  Sex: Male
  Weight: 90 kg

DRUGS (7)
  1. PHENYTOIN [Suspect]
     Indication: EPILEPSY
     Dosage: 300MG PO BID, THEN 300MG QHS BID PO
     Route: 048
  2. GLIPIZIDE [Concomitant]
  3. LISINOPRIL [Concomitant]
  4. LOVASTATIN [Concomitant]
  5. LYRICA [Concomitant]
  6. METFORMIN [Concomitant]
  7. AUGMENTIN [Concomitant]

REACTIONS (3)
  - FALL [None]
  - THERAPEUTIC AGENT TOXICITY [None]
  - TREATMENT NONCOMPLIANCE [None]
